FAERS Safety Report 12270519 (Version 1)
Quarter: 2016Q2

REPORT INFORMATION
  Report Type: Spontaneous
  Country: US (occurrence: US)
  Receive Date: 20160415
  Receipt Date: 20160415
  Transmission Date: 20160815
  Serious: No
  Sender: FDA-Public Use
  Company Number: US-BAYER-2016-071620

PATIENT
  Sex: Male

DRUGS (1)
  1. CHILDREN CLARITIN ALLERGY [Suspect]
     Active Substance: LORATADINE
     Dosage: 1 DF, QD
     Route: 048
     Dates: start: 20160404, end: 20160406

REACTIONS (2)
  - Rash papular [Not Recovered/Not Resolved]
  - Expired product administered [None]

NARRATIVE: CASE EVENT DATE: 20160404
